FAERS Safety Report 5864196-7 (Version None)
Quarter: 2008Q3

REPORT INFORMATION
  Report Type: 
  Country: None (occurrence: None)
  Receive Date: 20080829
  Receipt Date: 20080818
  Transmission Date: 20090109
  Serious: Yes (Other)
  Sender: FDA-Public Use
  Company Number: BR-ROCHE-582262

PATIENT
  Age: 67 Year
  Sex: Male
  Weight: 75 kg

DRUGS (10)
  1. RIVOTRIL [Suspect]
     Indication: INSOMNIA
     Route: 048
     Dates: start: 19980101, end: 20050101
  2. RIVOTRIL [Suspect]
     Route: 048
  3. RIVOTRIL [Suspect]
     Route: 048
     Dates: start: 20060101
  4. CLONAZEPAM [Suspect]
     Indication: INSOMNIA
     Dosage: DRUG NAME: CLOPAN
     Route: 065
  5. PAROXETINE HCL [Concomitant]
  6. ATENOLOL [Concomitant]
  7. ENALAPRIL MALEATE [Concomitant]
  8. AMLODIPINE [Concomitant]
  9. GINKGO BILOBA [Concomitant]
  10. SIMVASTATIN [Concomitant]

REACTIONS (4)
  - ANGIOPLASTY [None]
  - DIZZINESS [None]
  - ERYTHEMA [None]
  - PRURITUS [None]
